FAERS Safety Report 6758893-9 (Version None)
Quarter: 2010Q2

REPORT INFORMATION
  Report Type: 
  Country: None (occurrence: None)
  Receive Date: 20100607
  Receipt Date: 20100525
  Transmission Date: 20101027
  Serious: Yes (Other)
  Sender: FDA-Public Use
  Company Number: PHHY2010BR34201

PATIENT
  Age: 85 Year
  Sex: Female
  Weight: 73 kg

DRUGS (3)
  1. VOLTAREN [Suspect]
     Indication: BACK PAIN
     Route: 030
  2. ATENSINA [Concomitant]
     Indication: HYPERTENSION
     Dosage: ONE TABLET IN THE MORNING
     Route: 048
  3. HYDROCHLOROTHIAZIDE [Concomitant]
     Indication: HYPERTENSION
     Dosage: 1 TABLET TWICE DAILY
     Route: 048

REACTIONS (3)
  - BACK PAIN [None]
  - FALL [None]
  - LIMB INJURY [None]
